FAERS Safety Report 20904111 (Version 2)
Quarter: 2022Q2

REPORT INFORMATION
  Report Type: Spontaneous
  Country: US (occurrence: US)
  Receive Date: 20220602
  Receipt Date: 20220607
  Transmission Date: 20220720
  Serious: Yes (Other)
  Sender: FDA-Public Use
  Company Number: US-SA-2022SA200717

PATIENT
  Sex: Male

DRUGS (2)
  1. LANTUS SOLOSTAR [Suspect]
     Active Substance: INSULIN GLARGINE
     Indication: Diabetes mellitus
     Dosage: 1 DF, QD
  2. NOVOLOG [Concomitant]
     Active Substance: INSULIN ASPART
     Dosage: THREE TIMES A DAY

REACTIONS (4)
  - Myocardial infarction [Recovering/Resolving]
  - Chronic obstructive pulmonary disease [Recovering/Resolving]
  - Aphonia [Recovering/Resolving]
  - Varices oesophageal [Recovering/Resolving]
